FAERS Safety Report 24131368 (Version 1)
Quarter: 2024Q3

REPORT INFORMATION
  Report Type: Spontaneous
  Country: US (occurrence: US)
  Receive Date: 20240724
  Receipt Date: 20240724
  Transmission Date: 20241016
  Serious: No
  Sender: VITRUVIAS THERAPEUTICS
  Company Number: US-Vitruvias Therapeutics-2159496

PATIENT
  Sex: Female

DRUGS (1)
  1. CYANOCOBALAMIN [Suspect]
     Active Substance: CYANOCOBALAMIN
     Dates: start: 2016, end: 20240619

REACTIONS (2)
  - Prescribed overdose [Recovered/Resolved with Sequelae]
  - Withdrawal syndrome [Not Recovered/Not Resolved]
